FAERS Safety Report 8490932-X (Version None)
Quarter: 2012Q2

REPORT INFORMATION
  Report Type: 
  Country: None (occurrence: None)
  Receive Date: 20120629
  Receipt Date: 20120629
  Transmission Date: 20120825
  Serious: Yes (Hospitalization)
  Sender: FDA-Public Use
  Company Number: None

PATIENT
  Sex: Male
  Weight: 88.4514 kg

DRUGS (9)
  1. NEUPOGEN [Concomitant]
  2. ONDANSETRON [Concomitant]
  3. LASIX [Concomitant]
  4. LACTULOSE [Concomitant]
  5. COUMADIN [Concomitant]
  6. CLEOCIN HYDROCHLORIDE [Concomitant]
  7. REVLIMID [Suspect]
     Indication: CHRONIC LYMPHOCYTIC LEUKAEMIA
     Dosage: 10 MG ONCE DAILY PO
     Route: 048
     Dates: start: 20120606, end: 20120620
  8. REVLIMID [Suspect]
     Indication: B-CELL SMALL LYMPHOCYTIC LYMPHOMA
     Dosage: 10 MG ONCE DAILY PO
     Route: 048
     Dates: start: 20120606, end: 20120620
  9. COMPAZINE [Concomitant]

REACTIONS (4)
  - ABSCESS [None]
  - ANTIBIOTIC RESISTANT STAPHYLOCOCCUS TEST POSITIVE [None]
  - RASH [None]
  - CELLULITIS [None]
